FAERS Safety Report 5227773-2 (Version None)
Quarter: 2007Q1

REPORT INFORMATION
  Report Type: 
  Country: None (occurrence: None)
  Receive Date: 20070202
  Receipt Date: 20070123
  Transmission Date: 20070707
  Serious: Yes (Hospitalization)
  Sender: FDA-Public Use
  Company Number: US-PFIZER INC-2007006339

PATIENT
  Sex: Female
  Weight: 59.9 kg

DRUGS (15)
  1. DIFLUCAN ORAL TABLETS FOR VAGINAL CANDIDIASIS [Suspect]
     Indication: VULVOVAGINAL MYCOTIC INFECTION
     Dates: start: 20061124, end: 20061124
  2. DIFLUCAN ORAL TABLETS FOR VAGINAL CANDIDIASIS [Suspect]
     Dates: start: 20061207, end: 20061207
  3. FENTANYL [Suspect]
     Indication: BREAKTHROUGH PAIN
     Dosage: DAILY DOSE:800MCG
     Route: 048
  4. EFFEXOR [Concomitant]
  5. ZYRTEC [Concomitant]
     Dates: start: 20030101
  6. NEXIUM [Concomitant]
  7. ZANTAC [Concomitant]
     Dates: start: 20020101
  8. VALTREX [Concomitant]
     Dates: start: 20020101
  9. KLONOPIN [Concomitant]
     Dates: start: 20020101
  10. ADVAIR DISKUS 100/50 [Concomitant]
     Dates: start: 20010101
  11. MONTELUKAST [Concomitant]
     Dates: start: 20000101
  12. ATROVENT [Concomitant]
     Dates: start: 20050101
  13. ALBUTEROL [Concomitant]
     Dates: start: 19980101
  14. DURAGESIC-100 [Concomitant]
     Dates: start: 20061109
  15. RISPERDAL [Concomitant]
     Dates: start: 20061002

REACTIONS (1)
  - KIDNEY INFECTION [None]
